FAERS Safety Report 20600056 (Version 4)
Quarter: 2023Q1

REPORT INFORMATION
  Report Type: Spontaneous
  Country: AU (occurrence: AU)
  Receive Date: 20220316
  Receipt Date: 20230317
  Transmission Date: 20230418
  Serious: Yes (Other)
  Sender: FDA-Public Use
  Company Number: AU-CELLTRION INC.-2020AU029648

PATIENT

DRUGS (6)
  1. INFLECTRA [Suspect]
     Active Substance: INFLIXIMAB-DYYB
     Indication: Behcet^s syndrome
     Dosage: 500MG ((5 VIALS) EVERY 8 WEEKS)
     Route: 042
  2. INFLECTRA [Suspect]
     Active Substance: INFLIXIMAB-DYYB
     Dosage: 650 MG, 6 WEEKLY
     Route: 042
  3. AZATHIOPRINE [Concomitant]
     Active Substance: AZATHIOPRINE
     Dosage: 200 MG, DAILY
  4. AZATHIOPRINE [Concomitant]
     Active Substance: AZATHIOPRINE
     Dosage: 100 MG
  5. PREDNISOLONE [Concomitant]
     Active Substance: PREDNISOLONE
     Dosage: 5-15MG DAILY
  6. COLCHICINE [Concomitant]
     Active Substance: COLCHICINE
     Dosage: 0.5 MG, 2X/DAY

REACTIONS (4)
  - Behcet^s syndrome [Unknown]
  - Drug effective for unapproved indication [Unknown]
  - Off label use [Unknown]
  - Off label use [Unknown]
